FAERS Safety Report 7509093-6 (Version None)
Quarter: 2011Q2

REPORT INFORMATION
  Report Type: 
  Country: None (occurrence: None)
  Receive Date: 20110527
  Receipt Date: 20110523
  Transmission Date: 20111010
  Serious: Yes (Other)
  Sender: FDA-Public Use
  Company Number: GB-PFIZER INC-2011111555

PATIENT
  Age: 43 Year
  Sex: Female

DRUGS (4)
  1. PHENYTOIN SODIUM [Suspect]
     Indication: GRAND MAL CONVULSION
     Dosage: UNK
     Route: 042
  2. PHENYTOIN SODIUM [Suspect]
     Dosage: 300 MG/DAY
  3. PHENYTOIN SODIUM [Suspect]
     Dosage: 325 MG/DAY
  4. PHENYTOIN SODIUM [Suspect]
     Dosage: 350 MG/DAY

REACTIONS (4)
  - SOMNOLENCE [None]
  - COGNITIVE DISORDER [None]
  - INCONTINENCE [None]
  - ANTICONVULSANT DRUG LEVEL ABOVE THERAPEUTIC [None]
